FAERS Safety Report 24151604 (Version 1)
Quarter: 2024Q3

REPORT INFORMATION
  Report Type: Spontaneous
  Country: US (occurrence: US)
  Receive Date: 20240730
  Receipt Date: 20240730
  Transmission Date: 20241017
  Serious: No
  Sender: PERRIGO
  Company Number: US-PERRIGO-24US000154

PATIENT
  Age: 73 Year

DRUGS (2)
  1. LORATADINE [Suspect]
     Active Substance: LORATADINE
     Indication: Hypersensitivity
     Dosage: 10 MG, SINGLE
     Route: 048
     Dates: start: 2023, end: 2023
  2. LORATADINE [Suspect]
     Active Substance: LORATADINE
     Indication: Bone pain
     Dosage: 10 MG, SINGLE
     Route: 048
     Dates: start: 20240104, end: 20240104

REACTIONS (3)
  - Therapeutic product effect incomplete [Unknown]
  - Expired product administered [Recovered/Resolved]
  - Off label use [Recovered/Resolved]

NARRATIVE: CASE EVENT DATE: 20230101
